FAERS Safety Report 5465943-9 (Version None)
Quarter: 2007Q3

REPORT INFORMATION
  Report Type: 
  Country: None (occurrence: None)
  Receive Date: 20070924
  Receipt Date: 20070911
  Transmission Date: 20080115
  Serious: Yes (Hospitalization)
  Sender: FDA-Public Use
  Company Number: US-SHR-US-2007-011468

PATIENT
  Age: 52 Year
  Sex: Female
  Weight: 131.97 kg

DRUGS (27)
  1. BETASERON [Suspect]
     Indication: RELAPSING-REMITTING MULTIPLE SCLEROSIS
     Dosage: 16 MIU, EVERY 2D
     Route: 058
     Dates: start: 20000508
  2. BETASERON [Suspect]
     Dosage: 19.2 MIU, EVERY 2D
     Route: 058
  3. SOLU-MEDROL [Concomitant]
     Dosage: 1 G X 3 D
  4. SOLU-MEDROL [Concomitant]
     Dosage: 1 G X 3 D QO MONTH
  5. LIDOCAINE [Concomitant]
     Dosage: UNK, 2X/DAY
     Route: 023
  6. MAG-OX [Concomitant]
     Dosage: 400 MG, 2X/DAY
  7. ALLEGRA [Concomitant]
     Dosage: 180 MG/D, UNK
  8. CALCIUM [Concomitant]
     Dosage: 600 MG, 2X/DAY
  9. TRAZODONE HCL [Concomitant]
     Dosage: 300 MG/D, BED T.
  10. ATARAX [Concomitant]
     Dosage: 25 MG, Q4, AS REQ'D
     Route: 048
  11. LOTREL [Concomitant]
     Dosage: 10/20 QD
     Route: 048
  12. OXYCONTIN [Concomitant]
     Dosage: 40 MG, 2X/DAY
     Route: 048
  13. PERCOCET [Concomitant]
     Dosage: UNK, AS REQ'D
  14. MIRALAX [Concomitant]
     Dosage: 17 G, QD
     Route: 048
  15. NASACORT [Concomitant]
     Dosage: 2 SPRAYS EACH NOSTRIL, 1X/DAY
  16. LOPRESSOR [Concomitant]
     Dosage: 50 MG, 2X/DAY
     Route: 048
  17. BACLOFEN [Concomitant]
     Dosage: 20MG QAM/40MG QHS
  18. SEROQUEL [Concomitant]
     Dosage: 300 MG, BED T.
     Route: 048
  19. ZINC SULFATE [Concomitant]
     Dosage: 220 MG/D, UNK
  20. POTASSIUM CHLORIDE [Concomitant]
     Dosage: 40 MEQ, 1X/DAY
     Route: 048
  21. PREVACID [Concomitant]
     Dosage: 30 MG/D, UNK
     Route: 048
  22. FOLIC ACID [Concomitant]
     Dosage: 1 MG/D, UNK
  23. METHOTREXATE [Concomitant]
     Dosage: 2.5 MG, 3X/WEEK
     Route: 048
  24. TORSEMIDE [Concomitant]
     Dosage: 100 MG/D, UNK
     Route: 048
  25. TRILEPTAL [Concomitant]
     Dosage: 300MGQAM/600MGQPM
  26. SYNTHROID [Concomitant]
     Dosage: 25 A?G/DAY, UNK
     Route: 048
  27. CENTRUM [Concomitant]

REACTIONS (6)
  - CHEST PAIN [None]
  - DEHYDRATION [None]
  - INJECTION SITE RASH [None]
  - MULTIPLE SCLEROSIS [None]
  - PULMONARY EMBOLISM [None]
  - TREMOR [None]
